FAERS Safety Report 6007338-5 (Version None)
Quarter: 2008Q4

REPORT INFORMATION
  Report Type: 
  Country: None (occurrence: None)
  Receive Date: 20081217
  Receipt Date: 20080331
  Transmission Date: 20090506
  Serious: No
  Sender: FDA-Public Use
  Company Number: US-ASTRAZENECA-2008UW05005

PATIENT
  Age: 63 Year
  Sex: Male
  Weight: 99.8 kg

DRUGS (3)
  1. CRESTOR [Suspect]
     Indication: HYPERCHOLESTEROLAEMIA
     Route: 048
     Dates: start: 20040301
  2. TRICOR [Concomitant]
     Route: 048
     Dates: start: 20040301
  3. LOVAZA [Concomitant]

REACTIONS (2)
  - MUSCLE STRAIN [None]
  - TENDONITIS [None]
